FAERS Safety Report 18633752 (Version 2)
Quarter: 2020Q4

REPORT INFORMATION
  Report Type: Spontaneous
  Country: US (occurrence: US)
  Receive Date: 20201218
  Receipt Date: 20201223
  Transmission Date: 20210114
  Serious: No
  Sender: FDA-Public Use
  Company Number: US-SA-2020SA362494

PATIENT

DRUGS (1)
  1. DUPIXENT [Suspect]
     Active Substance: DUPILUMAB
     Indication: ASTHMA
     Dosage: 600 MG, 1X
     Route: 058
     Dates: start: 20201207, end: 20201207

REACTIONS (3)
  - Pruritus [Unknown]
  - Injection site pain [Unknown]
  - Periorbital swelling [Unknown]

NARRATIVE: CASE EVENT DATE: 202012
